FAERS Safety Report 5221723-0 (Version None)
Quarter: 2007Q1

REPORT INFORMATION
  Report Type: 
  Country: None (occurrence: None)
  Receive Date: 20070129
  Receipt Date: 20070117
  Transmission Date: 20070707
  Serious: Yes (Other)
  Sender: FDA-Public Use
  Company Number: PHBS2007BR01174

PATIENT
  Age: 50 Year
  Sex: Female
  Weight: 95 kg

DRUGS (1)
  1. FORASEQ [Suspect]
     Indication: ASTHMA
     Dosage: UNK, BID

REACTIONS (4)
  - AGITATION [None]
  - DYSPNOEA [None]
  - FATIGUE [None]
  - WEIGHT INCREASED [None]
